FAERS Safety Report 6531117-3 (Version None)
Quarter: 2010Q1

REPORT INFORMATION
  Report Type: 
  Country: None (occurrence: None)
  Receive Date: 20100108
  Receipt Date: 20091208
  Transmission Date: 20100710
  Serious: No
  Sender: FDA-Public Use
  Company Number: US-BAYER-200942329NA

PATIENT
  Age: 51 Year
  Sex: Female
  Weight: 57 kg

DRUGS (4)
  1. CIPROFLOXACIN [Suspect]
     Indication: CROHN'S DISEASE
     Dates: start: 20090101, end: 20090601
  2. HUMIRA [Suspect]
     Indication: CROHN'S DISEASE
     Dosage: AS USED: 40/0.8 MG/ML
     Route: 058
     Dates: start: 20090727
  3. BUPROPION HCL [Concomitant]
  4. ACETYLSALICYLIC ACID [Concomitant]
     Indication: ATRIAL FIBRILLATION
     Dates: start: 20090801

REACTIONS (1)
  - TENDON INJURY [None]
